FAERS Safety Report 7128128-6 (Version None)
Quarter: 2010Q4

REPORT INFORMATION
  Report Type: 
  Country: None (occurrence: None)
  Receive Date: 20101130
  Receipt Date: 20101122
  Transmission Date: 20110411
  Serious: Yes (Hospitalization, Other)
  Sender: FDA-Public Use
  Company Number: US-AMGEN-USASP2010006144

PATIENT

DRUGS (1)
  1. ENBREL [Suspect]
     Indication: RHEUMATOID ARTHRITIS
     Dosage: 50 MG, PRN
     Dates: start: 20001001, end: 20101020

REACTIONS (7)
  - ANAEMIA [None]
  - ARTHRALGIA [None]
  - ARTHRITIS INFECTIVE [None]
  - JOINT ARTHROPLASTY [None]
  - LYMPHOMA [None]
  - WEIGHT DECREASED [None]
  - WHITE BLOOD CELL COUNT DECREASED [None]
